FAERS Safety Report 19003732 (Version 5)
Quarter: 2021Q3

REPORT INFORMATION
  Report Type: Spontaneous
  Country: US (occurrence: US)
  Receive Date: 20210312
  Receipt Date: 20210927
  Transmission Date: 20211014
  Serious: Yes (Hospitalization, Other)
  Sender: FDA-Public Use
  Company Number: US-ELI_LILLY_AND_COMPANY-US202103002532

PATIENT
  Age: 82 Year
  Sex: Male
  Weight: 86.2 kg

DRUGS (17)
  1. ATORVASTATIN [Concomitant]
     Active Substance: ATORVASTATIN
     Indication: PRODUCT USED FOR UNKNOWN INDICATION
     Dosage: 10 MG, DAILY
     Route: 048
  2. FAMOTIDINE. [Concomitant]
     Active Substance: FAMOTIDINE
     Indication: PRODUCT USED FOR UNKNOWN INDICATION
     Dosage: 20 MG, DAILY
     Route: 065
  3. DEXTROSE 5% AND 0.9% NORMAL SALINE [Concomitant]
     Active Substance: DEXTROSE\SODIUM CHLORIDE
     Indication: PRODUCT USED FOR UNKNOWN INDICATION
     Dosage: 75ML/H UNK, UNKNOWN
     Route: 042
     Dates: start: 20210303
  4. ACETAMINOPHEN. [Concomitant]
     Active Substance: ACETAMINOPHEN
     Indication: PRODUCT USED FOR UNKNOWN INDICATION
     Dosage: 650 MG, EVERY 6 HOURS PRN
     Route: 065
  5. ASPIRIN [ACETYLSALICYLIC ACID] [Concomitant]
     Active Substance: ASPIRIN
     Indication: COVID-19
     Dosage: 81 MG, DAILY
     Route: 048
  6. TRESIBA [Concomitant]
     Active Substance: INSULIN DEGLUDEC
     Indication: TYPE 1 DIABETES MELLITUS
     Dosage: 0 UNK, DAILY
     Route: 058
  7. HUMALOG [Concomitant]
     Active Substance: INSULIN LISPRO
     Dosage: 2?12, EVERY 8 HRS WITH MEALS
     Route: 058
  8. CYMBALTA [Concomitant]
     Active Substance: DULOXETINE HYDROCHLORIDE
     Indication: PRODUCT USED FOR UNKNOWN INDICATION
     Dosage: 30 MG, EACH MORNING
     Route: 048
  9. BAMLANIVIMAB 700MG [Suspect]
     Active Substance: BAMLANIVIMAB
     Indication: COVID-19
     Dosage: 700 MG, SINGLE
     Route: 042
     Dates: start: 20210302, end: 20210302
  10. DONEPEZIL. [Concomitant]
     Active Substance: DONEPEZIL
     Indication: PRODUCT USED FOR UNKNOWN INDICATION
     Dosage: 5 MG, DAILY AT NIGHT
     Route: 048
  11. NOVOLOG [Concomitant]
     Active Substance: INSULIN ASPART
     Indication: PRODUCT USED FOR UNKNOWN INDICATION
     Dosage: 0 DOSAGE FORM, BID
     Route: 065
  12. CHOLECALCIFEROL [Concomitant]
     Active Substance: CHOLECALCIFEROL
     Indication: VITAMIN D DEFICIENCY
     Dosage: 50 UG, DAILY
     Route: 048
  13. HUMALOG [Concomitant]
     Active Substance: INSULIN LISPRO
     Indication: TYPE 1 DIABETES MELLITUS
     Dosage: 1?6U, EVERY 6 HRS, SLIDING SCALE
     Route: 058
     Dates: start: 20210303
  14. TRESIBA [Concomitant]
     Active Substance: INSULIN DEGLUDEC
     Dosage: 0.3 ML, DAILY
     Route: 065
  15. ENOXAPARIN [Concomitant]
     Active Substance: ENOXAPARIN
     Indication: PRODUCT USED FOR UNKNOWN INDICATION
     Dosage: 40 MG, DAILY
     Route: 058
     Dates: start: 20210303
  16. ALBUTEROL [SALBUTAMOL] [Concomitant]
     Active Substance: ALBUTEROL
     Indication: BRONCHOSPASM
     Dosage: 2 DOSAGE FORM, EVERY 4 HRS, AS NEEDED
     Route: 055
  17. DULOXETINE. [Concomitant]
     Active Substance: DULOXETINE
     Indication: PRODUCT USED FOR UNKNOWN INDICATION
     Dosage: 30 MG, DAILY
     Route: 048

REACTIONS (9)
  - Disorientation [Unknown]
  - Generalised tonic-clonic seizure [Unknown]
  - Cerebral small vessel ischaemic disease [Unknown]
  - Lethargy [Unknown]
  - Cerebral disorder [Unknown]
  - Syncope [Unknown]
  - Cerebral atrophy [Unknown]
  - Dysarthria [Unknown]
  - Encephalopathy [Unknown]

NARRATIVE: CASE EVENT DATE: 20210303
